FAERS Safety Report 25675880 (Version 1)
Quarter: 2025Q3

REPORT INFORMATION
  Report Type: Spontaneous
  Country: US (occurrence: US)
  Receive Date: 20250813
  Receipt Date: 20250813
  Transmission Date: 20251021
  Serious: Yes (Other)
  Sender: CHEPLAPHARM
  Company Number: US-ROCHE-2721149

PATIENT
  Sex: Female

DRUGS (50)
  1. CLONAZEPAM [Suspect]
     Active Substance: CLONAZEPAM
     Indication: Product used for unknown indication
     Route: 048
  2. RITUXAN [Suspect]
     Active Substance: RITUXIMAB
     Indication: Chronic cutaneous lupus erythematosus
     Route: 042
     Dates: start: 20191008
  3. RITUXAN [Suspect]
     Active Substance: RITUXIMAB
     Indication: Stiff person syndrome
     Route: 042
     Dates: start: 20191008
  4. RITUXAN [Suspect]
     Active Substance: RITUXIMAB
     Indication: Systemic lupus erythematosus
     Route: 042
     Dates: start: 20191008
  5. RITUXAN [Suspect]
     Active Substance: RITUXIMAB
     Indication: Chronic cutaneous lupus erythematosus
     Route: 042
     Dates: start: 20191022
  6. RITUXAN [Suspect]
     Active Substance: RITUXIMAB
     Indication: Stiff person syndrome
     Route: 042
     Dates: start: 20191022
  7. RITUXAN [Suspect]
     Active Substance: RITUXIMAB
     Indication: Systemic lupus erythematosus
     Route: 042
     Dates: start: 20191022
  8. RITUXAN [Suspect]
     Active Substance: RITUXIMAB
     Indication: Chronic cutaneous lupus erythematosus
     Route: 042
     Dates: start: 20220826
  9. RITUXAN [Suspect]
     Active Substance: RITUXIMAB
     Indication: Stiff person syndrome
     Route: 042
     Dates: start: 20220826
  10. RITUXAN [Suspect]
     Active Substance: RITUXIMAB
     Indication: Systemic lupus erythematosus
     Route: 042
     Dates: start: 20220826
  11. RITUXAN [Suspect]
     Active Substance: RITUXIMAB
     Indication: Chronic cutaneous lupus erythematosus
     Route: 042
     Dates: start: 20220909
  12. RITUXAN [Suspect]
     Active Substance: RITUXIMAB
     Indication: Stiff person syndrome
     Route: 042
     Dates: start: 20220909
  13. RITUXAN [Suspect]
     Active Substance: RITUXIMAB
     Indication: Systemic lupus erythematosus
     Route: 042
     Dates: start: 20220909
  14. RITUXAN [Suspect]
     Active Substance: RITUXIMAB
     Indication: Chronic cutaneous lupus erythematosus
     Route: 042
     Dates: start: 20230303
  15. RITUXAN [Suspect]
     Active Substance: RITUXIMAB
     Indication: Stiff person syndrome
     Route: 042
     Dates: start: 20230303
  16. RITUXAN [Suspect]
     Active Substance: RITUXIMAB
     Indication: Systemic lupus erythematosus
     Route: 042
     Dates: start: 20230303
  17. RITUXAN [Suspect]
     Active Substance: RITUXIMAB
     Indication: Chronic cutaneous lupus erythematosus
     Route: 042
     Dates: start: 20230317
  18. RITUXAN [Suspect]
     Active Substance: RITUXIMAB
     Indication: Stiff person syndrome
     Route: 042
     Dates: start: 20230317
  19. RITUXAN [Suspect]
     Active Substance: RITUXIMAB
     Indication: Systemic lupus erythematosus
     Route: 042
     Dates: start: 20230317
  20. RITUXAN [Suspect]
     Active Substance: RITUXIMAB
     Indication: Chronic cutaneous lupus erythematosus
     Route: 042
     Dates: start: 20230908
  21. RITUXAN [Suspect]
     Active Substance: RITUXIMAB
     Indication: Stiff person syndrome
     Route: 042
     Dates: start: 20230908
  22. RITUXAN [Suspect]
     Active Substance: RITUXIMAB
     Indication: Systemic lupus erythematosus
     Route: 042
     Dates: start: 20230908
  23. RITUXAN [Suspect]
     Active Substance: RITUXIMAB
     Indication: Chronic cutaneous lupus erythematosus
     Route: 042
     Dates: start: 20230922
  24. RITUXAN [Suspect]
     Active Substance: RITUXIMAB
     Indication: Stiff person syndrome
     Route: 042
     Dates: start: 20230922
  25. RITUXAN [Suspect]
     Active Substance: RITUXIMAB
     Indication: Systemic lupus erythematosus
     Route: 042
     Dates: start: 20230922
  26. RITUXAN [Suspect]
     Active Substance: RITUXIMAB
     Indication: Chronic cutaneous lupus erythematosus
     Route: 042
     Dates: start: 20240308
  27. RITUXAN [Suspect]
     Active Substance: RITUXIMAB
     Indication: Stiff person syndrome
     Route: 042
     Dates: start: 20240308
  28. RITUXAN [Suspect]
     Active Substance: RITUXIMAB
     Indication: Systemic lupus erythematosus
     Route: 042
     Dates: start: 20240308
  29. RITUXAN [Suspect]
     Active Substance: RITUXIMAB
     Indication: Chronic cutaneous lupus erythematosus
     Route: 042
     Dates: start: 20240322
  30. RITUXAN [Suspect]
     Active Substance: RITUXIMAB
     Indication: Stiff person syndrome
     Route: 042
     Dates: start: 20240322
  31. RITUXAN [Suspect]
     Active Substance: RITUXIMAB
     Indication: Systemic lupus erythematosus
     Route: 042
     Dates: start: 20240322
  32. RITUXAN [Suspect]
     Active Substance: RITUXIMAB
     Indication: Chronic cutaneous lupus erythematosus
     Dosage: 1000 MG ONCE DAY 1 DAY DAY 15
     Route: 042
  33. RITUXAN [Suspect]
     Active Substance: RITUXIMAB
     Indication: Stiff person syndrome
     Dosage: 1000 MG ONCE DAY 1 DAY DAY 15
     Route: 042
  34. RITUXAN [Suspect]
     Active Substance: RITUXIMAB
     Indication: Systemic lupus erythematosus
     Dosage: 1000 MG ONCE DAY 1 DAY DAY 15
     Route: 042
  35. DIAZEPAM [Suspect]
     Active Substance: DIAZEPAM
     Indication: Product used for unknown indication
     Route: 048
  36. BACLOFEN [Concomitant]
     Active Substance: BACLOFEN
     Dosage: QID WHILE AWAKE
     Route: 048
  37. ZOFENOPRIL [Concomitant]
     Active Substance: ZOFENOPRIL
     Route: 048
  38. VITAMIN C [Concomitant]
     Active Substance: ASCORBIC ACID
     Dosage: 2 P.O. ONCE A DAY =2000 MG
     Route: 048
  39. VITAMIN D3 [Concomitant]
     Active Substance: CHOLECALCIFEROL
     Route: 048
  40. FLUOXETINE [Concomitant]
     Active Substance: FLUOXETINE HYDROCHLORIDE
     Dosage: 4 TAB DAILY
  41. IVIGLOB EX [Concomitant]
     Active Substance: HUMAN IMMUNOGLOBULIN G
     Route: 042
  42. LOTRISONE [Concomitant]
     Active Substance: BETAMETHASONE DIPROPIONATE\CLOTRIMAZOLE
     Indication: Skin reaction
     Dosage: APPLY BID FOR 1 WEEK
     Route: 061
  43. HYDROXYCHLOROQUINE [Concomitant]
     Active Substance: HYDROXYCHLOROQUINE
     Dosage: 1/2 TAB P.O Q DAY
     Route: 048
  44. LEUCOVORIN [Concomitant]
     Active Substance: LEUCOVORIN\LEUCOVORIN CALCIUM
     Route: 048
  45. METHOTREXATE SODIUM [Concomitant]
     Active Substance: METHOTREXATE SODIUM
     Dosage: 6 TABS ALL AT ONCE, PO ONCE WEEKLY OR AS DIRECTED
     Route: 048
  46. PANTOPRAZOLE [Concomitant]
     Active Substance: PANTOPRAZOLE
     Dosage: 1 P.O. ONCE A DAY IN THE MORNING
     Route: 048
  47. PREDNISONE [Concomitant]
     Active Substance: PREDNISONE
     Route: 048
  48. PREDNISONE [Concomitant]
     Active Substance: PREDNISONE
     Route: 048
  49. FOLIC ACID [Concomitant]
     Active Substance: FOLIC ACID
  50. FOSAMAX [Concomitant]
     Active Substance: ALENDRONATE SODIUM
     Dosage: ONCE A WEEK AS DIRECTED

REACTIONS (5)
  - Neutropenia [Unknown]
  - Myasthenia gravis [Unknown]
  - Vitamin B12 deficiency [Unknown]
  - Depression [Unknown]
  - Anaemia [Unknown]
